FAERS Safety Report 24187871 (Version 1)
Quarter: 2024Q3

REPORT INFORMATION
  Report Type: Spontaneous
  Country: CA (occurrence: CA)
  Receive Date: 20240808
  Receipt Date: 20240808
  Transmission Date: 20241017
  Serious: Yes (Other)
  Sender: ACCORD
  Company Number: None

PATIENT
  Age: 3 Year
  Sex: Male

DRUGS (27)
  1. CARBOPLATIN [Suspect]
     Active Substance: CARBOPLATIN
     Indication: Bone marrow transplant
     Dosage: 1 EVERY 4 HOURS
     Route: 042
  2. ACETAMINOPHEN [Concomitant]
     Active Substance: ACETAMINOPHEN
  3. ACYCLOVIR [Concomitant]
     Active Substance: ACYCLOVIR
  4. ALOXI [Concomitant]
     Active Substance: PALONOSETRON HYDROCHLORIDE
  5. ALTEPLASE [Concomitant]
     Active Substance: ALTEPLASE
     Route: 042
  6. ATROPINE [Concomitant]
     Active Substance: ATROPINE
  7. CEFTAZIDIME [Concomitant]
     Active Substance: CEFTAZIDIME
     Dosage: POWDER FOR SOLUTION
  8. FAMCICLOVIR [Concomitant]
     Active Substance: FAMCICLOVIR
  9. FAMOTIDINE [Concomitant]
     Active Substance: FAMOTIDINE
  10. FILGRASTIM [Concomitant]
     Active Substance: FILGRASTIM
  11. FLUCONAZOLE [Concomitant]
     Active Substance: FLUCONAZOLE
  12. LANSOPRAZOLE [Concomitant]
     Active Substance: LANSOPRAZOLE
     Dosage: CAPSULE, DELAYED RELEASE
  13. LEVETIRACETAM [Concomitant]
     Active Substance: LEVETIRACETAM
     Route: 065
  14. LORATADINE [Concomitant]
     Active Substance: LORATADINE
     Route: 065
  15. MELATONIN [Concomitant]
     Active Substance: MELATONIN
  16. MEROPENEM [Concomitant]
     Active Substance: MEROPENEM
     Dosage: POWDER FOR SOLUTION
     Route: 042
  17. METOCLOPRAMIDE [Concomitant]
     Active Substance: METOCLOPRAMIDE
  18. OLANZAPINE [Concomitant]
     Active Substance: OLANZAPINE
  19. ONDANSETRON [Concomitant]
     Active Substance: ONDANSETRON
  20. PIPERACILLIN AND TAZOBACTAM [Concomitant]
     Active Substance: PIPERACILLIN SODIUM\TAZOBACTAM SODIUM
  21. THIOTEPA [Concomitant]
     Active Substance: THIOTEPA
  22. TOBRAMYCIN [Concomitant]
     Active Substance: TOBRAMYCIN\TOBRAMYCIN SULFATE
  23. TPN [Concomitant]
     Active Substance: AMINO ACIDS\DEXTROSE\ELECTROLYTES NOS\SOYBEAN OIL
  24. TRANEXAMIC ACID [Concomitant]
     Active Substance: TRANEXAMIC ACID
  25. SULFAMETHOXAZOLE\TRIMETHOPRIM [Concomitant]
     Active Substance: SULFAMETHOXAZOLE\TRIMETHOPRIM
  26. URSODIOL [Concomitant]
     Active Substance: URSODIOL
  27. VANCOMYCIN [Concomitant]
     Active Substance: VANCOMYCIN

REACTIONS (2)
  - Neuropathy peripheral [Unknown]
  - Neuralgia [Unknown]
